FAERS Safety Report 8543064-6 (Version None)
Quarter: 2012Q3

REPORT INFORMATION
  Report Type: 
  Country: None (occurrence: None)
  Receive Date: 20120727
  Receipt Date: 20120719
  Transmission Date: 20120928
  Serious: Yes (Other)
  Sender: FDA-Public Use
  Company Number: US-JNJFOC-20120710928

PATIENT
  Sex: Female
  Weight: 86.18 kg

DRUGS (2)
  1. REMICADE [Suspect]
     Indication: PSORIASIS
     Dosage: DOUBLED UP THE INFUSION
     Route: 042
     Dates: start: 20120101
  2. REMICADE [Suspect]
     Dosage: 6 TO 7 INFUSIONS IN TOTAL
     Route: 042

REACTIONS (3)
  - PSORIASIS [None]
  - DRUG INEFFECTIVE [None]
  - ARTHROPATHY [None]
